FAERS Safety Report 16422439 (Version 5)
Quarter: 2020Q4

REPORT INFORMATION
  Report Type: Spontaneous
  Country: US (occurrence: US)
  Receive Date: 20190612
  Receipt Date: 20201111
  Transmission Date: 20210113
  Serious: Yes (Other)
  Sender: FDA-Public Use
  Company Number: US-PFIZER INC-2019217271

PATIENT
  Age: 59 Year
  Sex: Female

DRUGS (1)
  1. XELJANZ XR [Suspect]
     Active Substance: TOFACITINIB CITRATE
     Indication: PAIN
     Dosage: 11 MG, 1X/DAY
     Route: 048
     Dates: start: 20190209

REACTIONS (5)
  - Product use in unapproved indication [Unknown]
  - Memory impairment [Unknown]
  - Malaise [Unknown]
  - Off label use [Unknown]
  - Brain injury [Unknown]

NARRATIVE: CASE EVENT DATE: 20190209
